FAERS Safety Report 17134611 (Version 1)
Quarter: 2019Q4

REPORT INFORMATION
  Report Type: Spontaneous
  Country: MY (occurrence: MY)
  Receive Date: 20191210
  Receipt Date: 20191210
  Transmission Date: 20200122
  Serious: Yes (Other)
  Sender: FDA-Public Use
  Company Number: NVSC2019MY060287

PATIENT
  Age: 2 Month
  Sex: Female

DRUGS (1)
  1. SANDOSTATIN [Suspect]
     Active Substance: OCTREOTIDE ACETATE
     Indication: HYPERINSULINISM
     Dosage: 0.272 UG (1HOURS)
     Route: 041

REACTIONS (1)
  - Hypokalaemia [Recovered/Resolved]
